FAERS Safety Report 25771183 (Version 1)
Quarter: 2025Q3

REPORT INFORMATION
  Report Type: Spontaneous
  Country: US (occurrence: US)
  Receive Date: 20250908
  Receipt Date: 20250908
  Transmission Date: 20251021
  Serious: No
  Sender: DOMPE FARMACEUTICI
  Company Number: US-FARMAPROD-202504-1065

PATIENT
  Sex: Female
  Weight: 68.58 kg

DRUGS (11)
  1. OXERVATE [Suspect]
     Active Substance: CENEGERMIN-BKBJ
     Indication: Neurotrophic keratopathy
     Route: 047
     Dates: start: 20250327
  2. AMLODIPINE BESYLATE [Concomitant]
     Active Substance: AMLODIPINE BESYLATE
  3. ACYCLOVIR [Concomitant]
     Active Substance: ACYCLOVIR
  4. OMEPRAZOLE [Concomitant]
     Active Substance: OMEPRAZOLE
  5. FUROSEMIDE [Concomitant]
     Active Substance: FUROSEMIDE
  6. LEVOTHYROXINE SODIUM [Concomitant]
     Active Substance: LEVOTHYROXINE SODIUM
  7. FLUTICASONE PROPIONATE [Concomitant]
     Active Substance: FLUTICASONE PROPIONATE
  8. LOSARTAN POTASSIUM [Concomitant]
     Active Substance: LOSARTAN POTASSIUM
  9. NYSTATIN [Concomitant]
     Active Substance: NYSTATIN
  10. CLONAZEPAM [Concomitant]
     Active Substance: CLONAZEPAM
  11. ALL DAY ALLERGY [Concomitant]
     Active Substance: CETIRIZINE HYDROCHLORIDE

REACTIONS (2)
  - Eye pain [Unknown]
  - Eyelid pain [Unknown]
